FAERS Safety Report 6286058-6 (Version None)
Quarter: 2009Q3

REPORT INFORMATION
  Report Type: 
  Country: None (occurrence: None)
  Receive Date: 20090728
  Receipt Date: 20090720
  Transmission Date: 20100115
  Serious: Yes (Other)
  Sender: FDA-Public Use
  Company Number: US-AMGEN-QUU354048

PATIENT
  Sex: Male
  Weight: 71.7 kg

DRUGS (10)
  1. ENBREL [Suspect]
     Indication: RHEUMATOID ARTHRITIS
     Route: 058
     Dates: start: 20090227, end: 20090515
  2. METHOTREXATE [Concomitant]
     Dates: start: 20080602
  3. PREDNISONE TAB [Concomitant]
     Dates: start: 20080401
  4. FELODIPINE [Concomitant]
  5. ATACAND [Concomitant]
  6. BUPRENORPHINE HCL [Concomitant]
  7. FOLIC ACID [Concomitant]
  8. ADVAIR HFA [Concomitant]
  9. SPIRIVA [Concomitant]
  10. ASPIRIN [Concomitant]

REACTIONS (11)
  - BACK PAIN [None]
  - BRONCHIECTASIS [None]
  - CHEST PAIN [None]
  - CHRONIC OBSTRUCTIVE PULMONARY DISEASE [None]
  - LUNG INFILTRATION [None]
  - MUSCLE STRAIN [None]
  - PLEURAL FIBROSIS [None]
  - PNEUMONIA [None]
  - PNEUMONIA PRIMARY ATYPICAL [None]
  - PULMONARY TOXICITY [None]
  - RENAL ATROPHY [None]
